FAERS Safety Report 11330075 (Version 5)
Quarter: 2016Q2

REPORT INFORMATION
  Report Type: Spontaneous
  Country: US (occurrence: US)
  Receive Date: 20150803
  Receipt Date: 20160428
  Transmission Date: 20160815
  Serious: Yes (Other)
  Sender: FDA-Public Use
  Company Number: US-PFIZER INC-2015258105

PATIENT
  Age: 73 Year
  Sex: Female
  Weight: 67 kg

DRUGS (21)
  1. LYRICA [Suspect]
     Active Substance: PREGABALIN
     Dosage: 75 MG, 4X/DAY
     Route: 048
     Dates: start: 20150311, end: 20160418
  2. XANAX [Concomitant]
     Active Substance: ALPRAZOLAM
     Dosage: 1 MG TABLET; SIG: TAKE 1 AND 1/2 TABLETS TID AND 2 TABLETS AT BEDTIME
     Route: 048
     Dates: start: 20160209
  3. SULFASALAZINE. [Concomitant]
     Active Substance: SULFASALAZINE
     Indication: COLITIS MICROSCOPIC
     Dosage: 500 MG, 4X/DAY
  4. CLIMARA [Concomitant]
     Active Substance: ESTRADIOL
     Dosage: 1 PATCH ONTO THE SKIN ONCE A WEEK
     Route: 062
     Dates: start: 20141125
  5. LYRICA [Suspect]
     Active Substance: PREGABALIN
     Dosage: 75 MG, 4X/DAY
     Route: 048
     Dates: start: 20160418
  6. XANAX [Concomitant]
     Active Substance: ALPRAZOLAM
     Indication: ANXIETY
     Dosage: 1 MG TABLET, 1.5 TABLETS THREE TIMES A DAY AND 2 TABLETS AT BEDTIME
     Route: 048
     Dates: start: 2006
  7. TYLENOL [Concomitant]
     Active Substance: ACETAMINOPHEN
     Indication: ARTHRITIS
     Dosage: 1300 MG, AS NEEDED (EVERY 8 (EIGHT) HOURS AS NEEDED)
     Route: 048
     Dates: start: 20160218
  8. LYRICA [Suspect]
     Active Substance: PREGABALIN
     Indication: FIBROMYALGIA
     Dosage: 75 MG, EVERY 4 HRS
     Route: 048
  9. AZULFIDINE [Concomitant]
     Active Substance: SULFASALAZINE
     Dosage: 500 MG, 4X/DAY
     Route: 048
     Dates: start: 20150226
  10. LYRICA [Suspect]
     Active Substance: PREGABALIN
     Indication: TRIGEMINAL NEURALGIA
     Dosage: 1-2 TABLETS A DAY
     Route: 048
  11. BUSPAR [Concomitant]
     Active Substance: BUSPIRONE HYDROCHLORIDE
     Indication: ANXIETY
     Dosage: 15 MG, 3X/DAY
     Route: 048
     Dates: start: 20150526
  12. BUSPAR [Concomitant]
     Active Substance: BUSPIRONE HYDROCHLORIDE
     Indication: MUSCLE SPASMS
     Dosage: 15 MG, 3X/DAY
     Route: 048
     Dates: start: 20160129
  13. NASONEX [Concomitant]
     Active Substance: MOMETASONE FUROATE
     Dosage: 2 SPRAYS INTO NARE(S) DAILY,50MCG/ACTUATION
     Route: 045
     Dates: start: 20150224
  14. AZULFIDINE [Concomitant]
     Active Substance: SULFASALAZINE
     Dosage: 500 MG, 4X/DAY
     Route: 048
     Dates: start: 20160129
  15. BENEFIBER [Concomitant]
     Active Substance: STARCH, WHEAT
     Dosage: 1 DF, DAILY (3 GRAM/3.5 GRAM POWD, 1 PACKET DAILY)
     Route: 048
  16. PARAFON FORTE [Concomitant]
     Active Substance: CHLORZOXAZONE
     Indication: MUSCLE SPASMS
     Dosage: 500 MG, 4X/DAY (AS NEEDED)
     Route: 048
     Dates: start: 20140218
  17. NORCO [Concomitant]
     Active Substance: ACETAMINOPHEN\HYDROCODONE BITARTRATE
     Dosage: 4X/DAY (HYDROCODONE BITARTRATE:5MG/ACETAMINOPHEN 325MG TAKE ? 1 EVERY 6 HOURS AS NEEDED)
     Route: 048
     Dates: start: 20150608
  18. TYLENOL [Concomitant]
     Active Substance: ACETAMINOPHEN
     Indication: PAIN
  19. AMLACTIN [Concomitant]
     Active Substance: AMMONIUM LACTATE
     Dosage: 12 %, 2X/DAY (EVERY 12 HRS AS NEEDED)
     Route: 061
  20. LOMOTIL [Concomitant]
     Active Substance: ATROPINE SULFATE\DIPHENOXYLATE HYDROCHLORIDE
     Indication: DIARRHOEA
     Dosage: 2 DF, 4X/DAY (DIPHENOXYLATE HYDROCHLORIDE 2.5MG/ ATROPINE 0.025 MG AS NEEDED)
     Route: 048
     Dates: start: 20131004
  21. CLIMARA [Concomitant]
     Active Substance: ESTRADIOL
     Dosage: 0.0375MG/24HR PLACE 1 PATCH ONTO THE SKIN ONCE A WEEK
     Route: 062
     Dates: start: 20150825

REACTIONS (5)
  - Weight increased [Recovered/Resolved]
  - Eye pain [Not Recovered/Not Resolved]
  - Nerve injury [Unknown]
  - Hypoaesthesia oral [Not Recovered/Not Resolved]
  - Hypoaesthesia [Not Recovered/Not Resolved]

NARRATIVE: CASE EVENT DATE: 2006
